FAERS Safety Report 12889810 (Version 3)
Quarter: 2017Q2

REPORT INFORMATION
  Report Type: Spontaneous
  Country: US (occurrence: US)
  Receive Date: 20161027
  Receipt Date: 20170627
  Transmission Date: 20170830
  Serious: No
  Sender: FDA-Public Use
  Company Number: US-PFIZER INC-2016092241

PATIENT
  Age: 56 Year
  Sex: Male

DRUGS (7)
  1. SUTENT [Suspect]
     Active Substance: SUNITINIB MALATE
     Dosage: 25 MG, DAILY (DAILY FOR 14 DAYS)
     Route: 048
     Dates: start: 20170221
  2. OXYCODONE HYDROCHLORIDE. [Concomitant]
     Active Substance: OXYCODONE HYDROCHLORIDE
     Dosage: UNK
  3. CITALOPRAM HYDROBROMIDE. [Concomitant]
     Active Substance: CITALOPRAM HYDROBROMIDE
     Dosage: UNK
  4. SUTENT [Suspect]
     Active Substance: SUNITINIB MALATE
     Indication: RENAL CELL CARCINOMA
     Dosage: 50 MG, (2 WEEKS ON AND 1 WEEK OFF)
     Dates: start: 2012
  5. MORPHINE SULFATE. [Concomitant]
     Active Substance: MORPHINE SULFATE
     Dosage: UNK
  6. SUTENT [Suspect]
     Active Substance: SUNITINIB MALATE
     Dosage: 25 MG, ONCE DAILY(14 DAYS THEN 7 DAYS OFF)
     Route: 048
  7. VIAGRA [Concomitant]
     Active Substance: SILDENAFIL CITRATE
     Dosage: UNK

REACTIONS (10)
  - Oral pain [Unknown]
  - Gingival bleeding [Unknown]
  - Drug dose omission [Unknown]
  - Pain [Unknown]
  - Myalgia [Unknown]
  - Intentional dose omission [Unknown]
  - Bone pain [Unknown]
  - Peripheral swelling [Unknown]
  - Skin depigmentation [Unknown]
  - Epistaxis [Unknown]
